FAERS Safety Report 5491319-4 (Version None)
Quarter: 2007Q4

REPORT INFORMATION
  Report Type: 
  Country: None (occurrence: None)
  Receive Date: 20071019
  Receipt Date: 20071012
  Transmission Date: 20080405
  Serious: Yes (Death, Disabling, Congenital Anomaly, Other)
  Sender: FDA-Public Use
  Company Number: GB-BOEHRINGER INGELHEIM PHARMACEUTICALS, INC.-2007-UK-03214UK

PATIENT

DRUGS (3)
  1. VIRAMUNE [Suspect]
     Indication: HIV INFECTION
     Route: 064
  2. VIDEX [Suspect]
     Indication: HIV INFECTION
     Route: 064
  3. RETROVIR [Suspect]
     Indication: HIV INFECTION
     Route: 064

REACTIONS (2)
  - FOETAL MALFORMATION [None]
  - STILLBIRTH [None]
